FAERS Safety Report 23256032 (Version 2)
Quarter: 2024Q1

REPORT INFORMATION
  Report Type: Spontaneous
  Country: US (occurrence: US)
  Receive Date: 20231204
  Receipt Date: 20240103
  Transmission Date: 20240410
  Serious: No
  Sender: FDA-Public Use
  Company Number: US-SA-SAC20231123000407

PATIENT
  Age: 27 Year
  Sex: Female

DRUGS (1)
  1. DUPIXENT [Suspect]
     Active Substance: DUPILUMAB
     Indication: Eosinophilic oesophagitis
     Dosage: 300MG, QW
     Route: 058

REACTIONS (7)
  - Lip swelling [Unknown]
  - Rash macular [Unknown]
  - Pruritus [Unknown]
  - Eye swelling [Unknown]
  - Erythema [Unknown]
  - Urticaria [Unknown]
  - Injection site rash [Unknown]

NARRATIVE: CASE EVENT DATE: 20231120
